FAERS Safety Report 5293156-2 (Version None)
Quarter: 2007Q2

REPORT INFORMATION
  Report Type: 
  Country: None (occurrence: None)
  Receive Date: 20070411
  Receipt Date: 20070402
  Transmission Date: 20071010
  Serious: Yes (Hospitalization)
  Sender: FDA-Public Use
  Company Number: 2007CG00547

PATIENT
  Age: 43 Year
  Sex: Female

DRUGS (3)
  1. PULMICORT [Suspect]
     Indication: BRONCHITIS
     Route: 055
     Dates: start: 20070218, end: 20070226
  2. CELESTENE [Concomitant]
     Indication: BRONCHITIS
     Route: 048
     Dates: start: 20070218, end: 20070226
  3. KETEK [Concomitant]
     Indication: BRONCHITIS
     Route: 048
     Dates: start: 20070218, end: 20070222

REACTIONS (4)
  - ERYTHEMA [None]
  - EYELID OEDEMA [None]
  - FACE OEDEMA [None]
  - URTICARIA [None]
